FAERS Safety Report 9306373 (Version 3)
Quarter: 2013Q3

REPORT INFORMATION
  Report Type: Spontaneous
  Country: US (occurrence: US)
  Receive Date: 20130523
  Receipt Date: 20130722
  Transmission Date: 20140515
  Serious: No
  Sender: FDA-Public Use
  Company Number: US-PFIZER INC-2013154333

PATIENT
  Age: 53 Year
  Sex: Female
  Weight: 77.1 kg

DRUGS (2)
  1. CLINDAMYCIN HCL [Suspect]
     Indication: PREMEDICATION
     Dosage: 600 MG (4 CAPSULES OF THE 150MG), SINGLE
     Route: 048
     Dates: start: 20130513, end: 20130513
  2. CLINDAMYCIN HCL [Suspect]
     Indication: DENTAL CARE

REACTIONS (3)
  - Vitreous floaters [Not Recovered/Not Resolved]
  - Visual acuity reduced [Not Recovered/Not Resolved]
  - Eye infection [Not Recovered/Not Resolved]
